FAERS Safety Report 10012661 (Version 1)
Quarter: 2014Q1

REPORT INFORMATION
  Report Type: Spontaneous
  Country: IT (occurrence: IT)
  Receive Date: 20140314
  Receipt Date: 20140314
  Transmission Date: 20141002
  Serious: Yes (Other)
  Sender: FDA-Public Use
  Company Number: IT-WATSON-2014-04444

PATIENT
  Age: 48 Year
  Sex: Female

DRUGS (1)
  1. LORAZEPAM (UNKNOWN) [Suspect]
     Indication: PRODUCT USED FOR UNKNOWN INDICATION
     Dosage: UNK
     Route: 048
     Dates: start: 20131231, end: 20131231

REACTIONS (2)
  - Sopor [Recovered/Resolved]
  - Drug abuse [Recovered/Resolved]
